FAERS Safety Report 4701884-X (Version None)
Quarter: 2005Q2

REPORT INFORMATION
  Report Type: 
  Country: None (occurrence: None)
  Receive Date: 20050627
  Receipt Date: 20050616
  Transmission Date: 20051028
  Serious: Yes (Hospitalization)
  Sender: FDA-Public Use
  Company Number: 2005BH000268

PATIENT
  Age: 52 Year
  Sex: Female

DRUGS (7)
  1. DIANEAL [Suspect]
     Dosage: 2 L; 5X A DAY;IP
     Route: 033
     Dates: start: 20050527
  2. DIANEAL [Suspect]
     Dosage: 2 L; 4X A DAY; IP
     Route: 033
     Dates: start: 20050527
  3. ATENOLOL [Concomitant]
  4. PHOSLO [Concomitant]
  5. FOLIC ACID [Concomitant]
  6. FESO4 [Concomitant]
  7. VICODIN [Concomitant]

REACTIONS (4)
  - KIDNEY INFECTION [None]
  - PRURITUS [None]
  - RASH MACULAR [None]
  - URINARY TRACT INFECTION [None]
